FAERS Safety Report 4596131-6 (Version None)
Quarter: 2005Q1

REPORT INFORMATION
  Report Type: 
  Country: None (occurrence: None)
  Receive Date: 20050302
  Receipt Date: 20040906
  Transmission Date: 20050727
  Serious: Yes (Life-Threatening)
  Sender: FDA-Public Use
  Company Number: NO-ROCHE-379975

PATIENT
  Age: 51 Year
  Sex: Male

DRUGS (49)
  1. DACLIZUMAB [Suspect]
     Route: 042
     Dates: start: 20040611
  2. DACLIZUMAB [Suspect]
     Route: 042
     Dates: start: 20040618
  3. MYCOPHENOLATE MOFETIL [Suspect]
     Route: 042
     Dates: start: 20040610, end: 20040614
  4. MYCOPHENOLATE MOFETIL [Suspect]
     Route: 048
     Dates: start: 20040615
  5. TACROLIMUS [Suspect]
     Route: 048
     Dates: start: 20040624
  6. TACROLIMUS [Suspect]
     Route: 048
     Dates: start: 20040615, end: 20040616
  7. TACROLIMUS [Suspect]
     Route: 048
     Dates: start: 20040617, end: 20040617
  8. TACROLIMUS [Suspect]
     Route: 048
     Dates: start: 20040618, end: 20040618
  9. TACROLIMUS [Suspect]
     Route: 048
     Dates: start: 20040619, end: 20040619
  10. TACROLIMUS [Suspect]
     Route: 048
     Dates: start: 20040620, end: 20040620
  11. TACROLIMUS [Suspect]
     Route: 048
     Dates: start: 20040621, end: 20040621
  12. TACROLIMUS [Suspect]
     Route: 048
     Dates: start: 20040622, end: 20040623
  13. METHYLPREDNISOLONE [Suspect]
     Route: 065
     Dates: start: 20040610, end: 20040610
  14. METHYLPREDNISOLONE [Suspect]
     Route: 065
     Dates: start: 20040611, end: 20040612
  15. METHYLPREDNISOLONE [Suspect]
     Route: 065
     Dates: start: 20040613, end: 20040613
  16. PREDNISOLONE [Suspect]
     Route: 065
     Dates: start: 20040618
  17. PREDNISOLONE [Suspect]
     Route: 065
     Dates: start: 20040614, end: 20040614
  18. PREDNISOLONE [Suspect]
     Route: 065
     Dates: start: 20040615, end: 20040615
  19. PREDNISOLONE [Suspect]
     Route: 065
     Dates: start: 20040616, end: 20040616
  20. PREDNISOLONE [Suspect]
     Route: 065
     Dates: start: 20040617, end: 20040617
  21. BACTRIM [Concomitant]
     Route: 065
     Dates: start: 20040612
  22. MEROPENEM [Concomitant]
     Indication: INFECTION PROPHYLAXIS
     Dates: start: 20040610, end: 20040811
  23. FLUNITRAZEPAM [Concomitant]
     Route: 065
     Dates: start: 20040616, end: 20040628
  24. DALTEPARIN [Concomitant]
     Indication: THROMBOSIS PROPHYLAXIS
     Dates: start: 20040611, end: 20040816
  25. INSULIN [Concomitant]
     Indication: DIABETES MELLITUS
     Dates: start: 20030615
  26. PANTOPRAZOL [Concomitant]
     Dates: start: 20040611, end: 20040805
  27. PROMETAZIN [Concomitant]
     Dates: start: 20040614, end: 20040615
  28. PARACETAMOL [Concomitant]
     Indication: PAIN
     Dates: start: 20040614
  29. AMPHOTERICIN B [Concomitant]
     Indication: ORAL FUNGAL INFECTION
     Dates: start: 20040620, end: 20040623
  30. FLUCONAZOLE [Concomitant]
     Indication: FUNGAL INFECTION
     Dates: start: 20040620
  31. FUROSEMIDE [Concomitant]
     Dates: start: 20040622, end: 20040807
  32. ACETYLSALICYLIC ACID [Concomitant]
     Indication: THROMBOSIS PROPHYLAXIS
     Dates: start: 20040623
  33. MIRTAZAPINE [Concomitant]
     Indication: SEDATION
     Dates: start: 20040629
  34. CEFOTAXIM [Concomitant]
     Indication: INFECTION
     Dates: start: 20040703, end: 20040714
  35. METRONIDAZOLE [Concomitant]
     Indication: INFECTION
     Dates: start: 20040705, end: 20040706
  36. RANITIDINE HCL [Concomitant]
     Dates: start: 20040805
  37. LEVOMEPROMAZIN [Concomitant]
     Dates: start: 20040614, end: 20040628
  38. OXAZEPAM [Concomitant]
     Dates: start: 20040705
  39. PARALGIN FORTE [Concomitant]
     Dates: start: 20040811, end: 20040816
  40. ZOLPIDEM TARTRATE [Concomitant]
     Indication: SLEEP DISORDER
     Dates: start: 20040609, end: 20040614
  41. DIAZEPAM [Concomitant]
     Dates: start: 20040612, end: 20040615
  42. ADRENALINE [Concomitant]
     Indication: BLOOD PRESSURE
     Dates: start: 20040610, end: 20040610
  43. POTASSIUM CHLORIDE [Concomitant]
     Indication: BLOOD POTASSIUM
     Dates: start: 20040610, end: 20040610
  44. MIDAZOLAM [Concomitant]
     Indication: SEDATIVE THERAPY
     Dates: start: 20040610, end: 20040611
  45. KETOBEMIDON [Concomitant]
     Dates: start: 20040612, end: 20040808
  46. ALIMEMAZIN [Concomitant]
     Dates: start: 20040613, end: 20040613
  47. PROPOFOL [Concomitant]
     Indication: SEDATIVE THERAPY
     Dates: start: 20040612, end: 20040612
  48. ZOPICLON [Concomitant]
     Dates: start: 20040812, end: 20040812
  49. NIFEDIPINE [Concomitant]
     Indication: BLOOD PRESSURE
     Dates: start: 20040811

REACTIONS (7)
  - ENTEROCOCCAL INFECTION [None]
  - HEPATIC ARTERY ANEURYSM [None]
  - HYPOTENSION [None]
  - INFECTION [None]
  - NECROSIS [None]
  - PERITONITIS [None]
  - POST PROCEDURAL BILE LEAK [None]
